FAERS Safety Report 9995449 (Version 1)
Quarter: 2014Q1

REPORT INFORMATION
  Report Type: Spontaneous
  Country: US (occurrence: None)
  Receive Date: 20140307
  Receipt Date: 20140307
  Transmission Date: 20141002
  Serious: No
  Sender: FDA-Public Use
  Company Number: None

PATIENT
  Sex: Female

DRUGS (1)
  1. ACTONEL [Suspect]

REACTIONS (5)
  - Haemorrhage [None]
  - Pharyngeal haemorrhage [None]
  - Cough [None]
  - Haematemesis [None]
  - Product quality issue [None]
